FAERS Safety Report 20608794 (Version 1)
Quarter: 2022Q1

REPORT INFORMATION
  Report Type: Spontaneous
  Country: FR (occurrence: FR)
  Receive Date: 20220317
  Receipt Date: 20220317
  Transmission Date: 20220424
  Serious: Yes (Hospitalization)
  Sender: FDA-Public Use
  Company Number: None

PATIENT
  Age: 68 Year
  Sex: Female

DRUGS (4)
  1. SIRTURO [Suspect]
     Active Substance: BEDAQUILINE FUMARATE
     Indication: Pulmonary tuberculosis
     Route: 048
     Dates: start: 20220119, end: 20220204
  2. MINOCYCLINE HYDROCHLORIDE [Concomitant]
     Active Substance: MINOCYCLINE HYDROCHLORIDE
     Indication: Pulmonary tuberculosis
     Route: 048
     Dates: start: 20220119, end: 20220204
  3. BACTRIM [Concomitant]
     Active Substance: SULFAMETHOXAZOLE\TRIMETHOPRIM
     Indication: Pulmonary tuberculosis
     Route: 048
     Dates: start: 20220119, end: 20220204
  4. LEVOFLOXACIN [Concomitant]
     Active Substance: LEVOFLOXACIN
     Indication: Pulmonary tuberculosis
     Route: 048
     Dates: start: 20220119, end: 20220204

REACTIONS (1)
  - Hepatic cytolysis [Recovered/Resolved]

NARRATIVE: CASE EVENT DATE: 20220203
